FAERS Safety Report 6158231-9 (Version None)
Quarter: 2009Q2

REPORT INFORMATION
  Report Type: 
  Country: None (occurrence: None)
  Receive Date: 20090417
  Receipt Date: 20080401
  Transmission Date: 20091009
  Serious: No
  Sender: FDA-Public Use
  Company Number: US-AMGEN-US272298

PATIENT
  Sex: Female
  Weight: 89 kg

DRUGS (12)
  1. SENSIPAR [Suspect]
     Indication: HYPERPARATHYROIDISM SECONDARY
     Route: 048
     Dates: start: 20071009
  2. RENAGEL [Concomitant]
     Route: 065
     Dates: start: 20070508
  3. CALCITRIOL [Concomitant]
     Route: 065
     Dates: start: 20060124
  4. ARANESP [Concomitant]
     Route: 065
     Dates: start: 20041129
  5. K-DUR [Concomitant]
     Route: 065
     Dates: start: 20051108
  6. SYNTHROID [Concomitant]
     Route: 065
     Dates: start: 20061109
  7. LIPITOR [Concomitant]
     Route: 065
     Dates: start: 20041213
  8. TUMS [Concomitant]
     Route: 065
  9. PRILOSEC [Concomitant]
     Route: 065
     Dates: start: 20060509
  10. FEOSOL [Concomitant]
     Route: 065
     Dates: start: 20040509
  11. CENTRUM SILVER [Concomitant]
     Route: 065
     Dates: start: 20061119
  12. CLARINEX [Concomitant]
     Route: 065
     Dates: start: 20051108

REACTIONS (2)
  - BLOOD CALCIUM DECREASED [None]
  - HYPOAESTHESIA [None]
